FAERS Safety Report 7817295-4 (Version None)
Quarter: 2011Q4

REPORT INFORMATION
  Report Type: 
  Country: None (occurrence: None)
  Receive Date: 20111017
  Receipt Date: 20111012
  Transmission Date: 20120403
  Serious: Yes (Death, Hospitalization)
  Sender: FDA-Public Use
  Company Number: US-PFIZER INC-2011200439

PATIENT
  Sex: Male

DRUGS (2)
  1. VOTRIENT [Concomitant]
     Dosage: 200 MG, UNK
  2. SUTENT [Suspect]
     Dosage: 50 MG, 1X/DAY, 4 WEEKS ON THEN 2 WEEKS OFF
     Route: 048

REACTIONS (3)
  - NEOPLASM MALIGNANT [None]
  - DISEASE PROGRESSION [None]
  - PAIN MANAGEMENT [None]
